FAERS Safety Report 8301567-3 (Version None)
Quarter: 2012Q2

REPORT INFORMATION
  Report Type: 
  Country: None (occurrence: None)
  Receive Date: 20120420
  Receipt Date: 20120411
  Transmission Date: 20120825
  Serious: Yes (Other)
  Sender: FDA-Public Use
  Company Number: BR-JNJFOC-20120307839

PATIENT
  Sex: Female
  Weight: 95.3 kg

DRUGS (10)
  1. REMICADE [Suspect]
     Route: 042
     Dates: start: 20120301
  2. FUROSEMIDE [Concomitant]
     Route: 065
  3. REMICADE [Suspect]
     Route: 042
     Dates: start: 20111202
  4. STEROIDS NOS [Suspect]
     Indication: PRODUCT USED FOR UNKNOWN INDICATION
     Route: 065
  5. DEFLAZACORT [Concomitant]
     Route: 065
  6. MELOXICAM [Concomitant]
     Indication: RHEUMATOID ARTHRITIS
     Route: 065
  7. SYNTHROID [Concomitant]
     Indication: HORMONE THERAPY
     Route: 065
  8. REMICADE [Suspect]
     Route: 042
     Dates: start: 20111216
  9. REMICADE [Suspect]
     Route: 042
     Dates: start: 20120117
  10. REMICADE [Suspect]
     Indication: RHEUMATOID ARTHRITIS
     Route: 042
     Dates: start: 20120313

REACTIONS (5)
  - ASTHENIA [None]
  - GENERALISED OEDEMA [None]
  - CD4 LYMPHOCYTES DECREASED [None]
  - FURUNCLE [None]
  - URINARY TRACT INFECTION [None]
